FAERS Safety Report 12880616 (Version 1)
Quarter: 2016Q4

REPORT INFORMATION
  Report Type: Spontaneous
  Country: BR (occurrence: BR)
  Receive Date: 20161025
  Receipt Date: 20161025
  Transmission Date: 20170207
  Serious: Yes (Other)
  Sender: FDA-Public Use
  Company Number: BR-GLAXOSMITHKLINE-BR2016GSK156039

PATIENT
  Sex: Male
  Weight: 69 kg

DRUGS (1)
  1. COMBODART [Suspect]
     Active Substance: DUTASTERIDE\TAMSULOSIN
     Indication: PROSTATIC DISORDER
     Dosage: 1 DF, QD
     Dates: start: 20160920

REACTIONS (6)
  - Feeling abnormal [Recovered/Resolved]
  - Enteritis infectious [Unknown]
  - Micturition disorder [Unknown]
  - Dysuria [Unknown]
  - Dysuria [Recovered/Resolved]
  - Prostatic disorder [Recovered/Resolved]
